FAERS Safety Report 8086365-0 (Version None)
Quarter: 2012Q1

REPORT INFORMATION
  Report Type: 
  Country: None (occurrence: None)
  Receive Date: 20120128
  Receipt Date: 20110510
  Transmission Date: 20120608
  Serious: No
  Sender: FDA-Public Use
  Company Number: US-ABBOTT-11P-163-0724645-00

PATIENT
  Age: 63 Year
  Sex: Female

DRUGS (6)
  1. HUMIRA [Suspect]
     Indication: RHEUMATOID ARTHRITIS
     Dates: start: 20100501, end: 20110410
  2. PRILOSEC [Concomitant]
     Indication: GASTROOESOPHAGEAL REFLUX DISEASE
  3. ACETAMINOPHEN [Concomitant]
     Indication: INSOMNIA
  4. ACETAMINOPHEN [Concomitant]
     Indication: PAIN
  5. TYLENOL P.M. [Concomitant]
     Indication: PAIN
  6. TYLENOL P.M. [Concomitant]
     Indication: INSOMNIA

REACTIONS (5)
  - DRUG DOSE OMISSION [None]
  - DISCOMFORT [None]
  - OCULAR HYPERAEMIA [None]
  - DRY EYE [None]
  - EYE DISCHARGE [None]
